FAERS Safety Report 10180254 (Version 1)
Quarter: 2014Q2

REPORT INFORMATION
  Report Type: Spontaneous
  Country: PL (occurrence: None)
  Receive Date: 20140515
  Receipt Date: 20140515
  Transmission Date: 20141212
  Serious: Yes (Hospitalization)
  Sender: FDA-Public Use
  Company Number: FK201401734

PATIENT
  Age: 26 Year
  Sex: Female
  Weight: 73 kg

DRUGS (4)
  1. ROCURONIUMBROMID KABI 10 MG/ML (ROCURONIUM BROMIDE) (ROCURONIUM BROMIDE) [Suspect]
     Indication: GENERAL ANAESTHESIA
     Dosage: 50 MG, I IN 1 D, INTRAVENOUS ( NOT OTHERWISE SPECIFIED)
     Route: 042
     Dates: start: 20140306, end: 20140306
  2. PROPOFOL [Suspect]
     Indication: GENERAL ANAESTHESIA
     Dosage: 150 MG, 1 IN 1 D, INTRAVENOUS ( NOT OTHERWISE SPECIFIED)
     Route: 042
     Dates: start: 20140306, end: 20140306
  3. FENTANYL [Suspect]
     Indication: GENERAL ANAESTHESIA
     Dosage: 0.1 MG, 1 IN 1 D, INTRAVENOUS ( NOT OTHERWISE SPECIFIED)
     Route: 042
     Dates: start: 20140306, end: 20140306
  4. MIDANIUM [Suspect]
     Indication: GENERAL ANAESTHESIA
     Dosage: 2 MG, 1 IN 1 D, INTRAVENOUS ( NOT OTHERWISE SPECIFIED)
     Route: 042
     Dates: start: 20140306, end: 20140306

REACTIONS (2)
  - Erythema [None]
  - Urticaria [None]
